FAERS Safety Report 9989604 (Version 1)
Quarter: 2014Q1

REPORT INFORMATION
  Report Type: Report from Study
  Country: US (occurrence: US)
  Receive Date: 20140310
  Receipt Date: 20140310
  Transmission Date: 20141002
  Serious: No
  Sender: FDA-Public Use
  Company Number: US-ABBVIE-13P-163-1132611-00

PATIENT
  Age: 78 Year
  Sex: Female

DRUGS (9)
  1. HUMIRA [Suspect]
     Indication: CROHN^S DISEASE
     Dates: start: 20130806, end: 20130806
  2. HUMIRA [Suspect]
     Dosage: 80 MG ON 07 AUG 13
     Dates: start: 20130807
  3. FENOFIBRATE [Concomitant]
     Indication: PRODUCT USED FOR UNKNOWN INDICATION
  4. XARELTO [Concomitant]
     Indication: PRODUCT USED FOR UNKNOWN INDICATION
  5. BETA PACE [Concomitant]
     Indication: PRODUCT USED FOR UNKNOWN INDICATION
  6. LEVOTHYROXINE [Concomitant]
     Indication: PRODUCT USED FOR UNKNOWN INDICATION
  7. DIAZEPAM [Concomitant]
     Indication: INNER EAR DISORDER
     Dosage: AT BEDTIME
  8. PENTASA [Concomitant]
     Indication: PRODUCT USED FOR UNKNOWN INDICATION
     Dosage: AT MEALS
  9. DOMPERIDONE [Concomitant]
     Indication: PRODUCT USED FOR UNKNOWN INDICATION
     Dosage: BEFORE MEALS

REACTIONS (2)
  - Injection site pain [Recovered/Resolved]
  - Headache [Recovered/Resolved]
